FAERS Safety Report 8560118-9 (Version None)
Quarter: 2012Q3

REPORT INFORMATION
  Report Type: 
  Country: None (occurrence: None)
  Receive Date: 20120802
  Receipt Date: 20120725
  Transmission Date: 20120928
  Serious: Yes (Other)
  Sender: FDA-Public Use
  Company Number: US-SANOFI-AVENTIS-2012SA050381

PATIENT
  Age: 52 Year
  Sex: Female

DRUGS (2)
  1. SYNTHROID [Concomitant]
     Indication: THYROID DISORDER
     Dosage: EVERY MORNING AT 7:30
     Route: 048
  2. AMBIEN [Suspect]
     Indication: SLEEP DISORDER
     Route: 048

REACTIONS (5)
  - DIZZINESS [None]
  - AMNESIA [None]
  - ROAD TRAFFIC ACCIDENT [None]
  - SPEECH DISORDER [None]
  - DISORIENTATION [None]
